FAERS Safety Report 9532298 (Version 6)
Quarter: 2013Q4

REPORT INFORMATION
  Report Type: Report from Study
  Country: US (occurrence: US)
  Receive Date: 20130918
  Receipt Date: 20131129
  Transmission Date: 20140711
  Serious: Yes (Hospitalization, Other)
  Sender: FDA-Public Use
  Company Number: PHEH2013US019378

PATIENT
  Age: 56 Year
  Sex: Male
  Weight: 84.1 kg

DRUGS (5)
  1. GILENYA [Suspect]
     Indication: MULTIPLE SCLEROSIS
     Dosage: 0.5 MG, QD
     Route: 048
     Dates: start: 20110802
  2. GILENYA [Suspect]
     Dosage: 0.5 MG, QD
     Route: 048
     Dates: start: 20130124
  3. GABAPENTIN [Concomitant]
     Dosage: 4 DF, QHS
     Route: 048
     Dates: start: 20121212
  4. ATIVAN [Concomitant]
     Dosage: 1 DF, 30 MINUTES BEFORE MRI
     Route: 048
     Dates: start: 20121212
  5. NUEDEXTA [Concomitant]
     Indication: PAIN
     Dosage: 1 DF, QD
     Route: 048
     Dates: start: 20121212

REACTIONS (15)
  - Cerebrovascular accident [Recovered/Resolved with Sequelae]
  - Lacunar infarction [Unknown]
  - Trigeminal neuralgia [Recovering/Resolving]
  - Facial pain [Recovering/Resolving]
  - Multiple sclerosis relapse [Unknown]
  - Dysarthria [Unknown]
  - Muscular weakness [Unknown]
  - Hypoaesthesia [Unknown]
  - Paraesthesia [Unknown]
  - Upper motor neurone lesion [Unknown]
  - Hemiparesis [Unknown]
  - Transient ischaemic attack [Recovering/Resolving]
  - Decreased activity [Recovering/Resolving]
  - VIIth nerve paralysis [Unknown]
  - Hypertension [Unknown]
